FAERS Safety Report 13996083 (Version 1)
Quarter: 2017Q3

REPORT INFORMATION
  Report Type: Spontaneous
  Country: US (occurrence: US)
  Receive Date: 20170921
  Receipt Date: 20170921
  Transmission Date: 20171128
  Serious: No
  Sender: FDA-Public Use
  Company Number: US-AMARIN PHARMA, INC.-2017AMR000031

PATIENT
  Sex: Female
  Weight: 74.91 kg

DRUGS (2)
  1. VASCEPA [Suspect]
     Active Substance: ICOSAPENT ETHYL
     Indication: BLOOD CHOLESTEROL ABNORMAL
     Route: 048
     Dates: start: 201504
  2. SYNTHROID [Concomitant]
     Active Substance: LEVOTHYROXINE SODIUM
     Indication: HYPERTHYROIDISM
     Route: 048

REACTIONS (3)
  - Mouth injury [Recovered/Resolved]
  - Product physical issue [Unknown]
  - Drug dose omission [Recovered/Resolved]
